FAERS Safety Report 6354772-X (Version None)
Quarter: 2009Q3

REPORT INFORMATION
  Report Type: 
  Country: None (occurrence: None)
  Receive Date: 20090914
  Receipt Date: 20090901
  Transmission Date: 20100115
  Serious: Yes (Other)
  Sender: FDA-Public Use
  Company Number: US-PFIZER INC-2009177501

PATIENT
  Sex: Female
  Weight: 68 kg

DRUGS (6)
  1. CHANTIX [Suspect]
     Indication: SMOKING CESSATION THERAPY
     Dosage: UNK
     Route: 048
     Dates: start: 20090127, end: 20090219
  2. PREDNISONE [Suspect]
     Dosage: UNK
  3. ZITHROMAX [Suspect]
  4. VERAMYST [Suspect]
  5. XYZAL [Suspect]
  6. ZYRTEC [Concomitant]
     Dosage: UNK

REACTIONS (4)
  - DEAFNESS [None]
  - EYELID PTOSIS [None]
  - FACIAL PALSY [None]
  - VESTIBULAR NEURONITIS [None]
